FAERS Safety Report 10682178 (Version 6)
Quarter: 2016Q3

REPORT INFORMATION
  Report Type: Spontaneous
  Country: US (occurrence: US)
  Receive Date: 20141230
  Receipt Date: 20160725
  Transmission Date: 20161109
  Serious: No
  Sender: FDA-Public Use
  Company Number: US-PFIZER INC-2014359235

PATIENT
  Age: 87 Year
  Sex: Male

DRUGS (27)
  1. CLARITIN [Concomitant]
     Active Substance: LORATADINE
     Dosage: 10 MG, AS NEEDED (TAKE 0.5 TAB (5 MG) BY MOUTH EVERY DAY AS NEEDED)
     Route: 048
     Dates: start: 20141101
  2. LYRICA [Suspect]
     Active Substance: PREGABALIN
     Indication: NEUROPATHY PERIPHERAL
     Dosage: 50 MG, 2X/DAY
     Route: 048
  3. L-ARGININE [Concomitant]
     Active Substance: ARGININE
     Dosage: 1000 MG, DAILY (TAKE 1/2 TAB (500MG) BY MOUTH EVERY DAY WITH A MEAL)
     Route: 048
     Dates: start: 20160202
  4. ATIVAN [Concomitant]
     Active Substance: LORAZEPAM
     Indication: ANXIETY
     Dosage: 0.5 MG, AS NEEDED (TAKE 1 TAB BY MOUTH EVERY 6 HOURS AS NEEDED)
     Route: 048
     Dates: start: 20150625
  5. MELATONIN [Concomitant]
     Active Substance: MELATONIN
     Dosage: 5 MG, UNK (1/2 TAB (2.5MG) AT BEDTIME WITH FOOD)
     Dates: start: 20151223
  6. ARISTOCORT [Concomitant]
     Active Substance: TRIAMCINOLONE DIACETATE
     Dosage: UNK UNK, AS NEEDED (APPLY TOPICALLY T0 AFFECTED AREA (S) OF BILATERAL ANGLE TWICE DAILY AS NEEDED)
     Route: 061
  7. ROBITUSSIN DM [Concomitant]
     Active Substance: DEXTROMETHORPHAN HYDROBROMIDE\GUAIFENESIN
     Indication: COUGH
     Dosage: 10 ML, AS NEEDED (100-10 MG/S SYRUP, TAKE 10 ML BY MOUTH EVERY 6 HOURS AS NEEDED)
     Route: 048
     Dates: start: 20160407
  8. LOPRESSOR [Concomitant]
     Active Substance: METOPROLOL TARTRATE
     Dosage: 12.5 MG, DAILY (1/2 TAB (12.5MG) BY MOUTH TWICE DAILY)
     Route: 048
  9. FISH OIL SOFTGEL [Concomitant]
     Dosage: UNK, DAILY (360-1200MG CAPSULE, 100+20 TAKE 1 CAP BY MOUTH EVERY DAY)
     Route: 048
     Dates: start: 20160110
  10. ARMOUR THYROID [Concomitant]
     Active Substance: THYROID, PORCINE
     Dosage: 150 MG, DAILY (30MG TABLET, 5 TABS BY MOUTH EVERYDAY)
     Route: 048
     Dates: start: 20160126
  11. IMODIUM A-D [Concomitant]
     Active Substance: LOPERAMIDE HYDROCHLORIDE
     Dosage: UNK UNK, AS NEEDED (TAKE 1 TAB BY MOUTH FOUR TIMES DAILY AS NEEDED)
     Route: 048
     Dates: start: 20151231
  12. NORVASC [Concomitant]
     Active Substance: AMLODIPINE BESYLATE
     Dosage: 50 MG, DAILY (1/2 BY MOUTH DAILY)
     Route: 048
     Dates: start: 20160609
  13. MAGNESIUM [Concomitant]
     Active Substance: MAGNESIUM
     Dosage: 200 MG, 3X/DAY
     Route: 048
     Dates: start: 20140925
  14. FOLCAPS [Concomitant]
     Active Substance: CYANOCOBALAMIN\FOLIC ACID\PYRIDOXINE HYDROCHLORIDE
     Dosage: UNK UNK, DAILY (0.5-2.2-25 TAKE 1 TAB BY MOUTH EVERY DAY)
     Route: 048
     Dates: start: 20140918
  15. K-DUR [Concomitant]
     Active Substance: POTASSIUM CHLORIDE
     Dosage: 10 UG, DAILY
     Route: 048
     Dates: start: 20160204
  16. LOPERAMIDE HCL [Concomitant]
     Active Substance: LOPERAMIDE HYDROCHLORIDE
     Indication: DIARRHOEA
     Dosage: 2 MG, AS NEEDED (TAKE 1 CAP BY MOUTH FOUR TIMES DAILY AS NEEDED)
     Route: 048
     Dates: start: 20150625
  17. DESYREL [Concomitant]
     Active Substance: TRAZODONE HYDROCHLORIDE
     Dosage: 50 MG, AS NEEDED (TAKE 1 TAB BY MOUTH EVERY NIGHT AT BEDTIME AS NEEDED)
     Route: 048
     Dates: start: 20150806
  18. NORVASC [Concomitant]
     Active Substance: AMLODIPINE BESYLATE
     Dosage: 5 MG, DAILY
     Route: 048
     Dates: start: 20160402
  19. MAGNESIUM [Concomitant]
     Active Substance: MAGNESIUM
     Dosage: 200 MG, 3X/DAY
     Route: 048
     Dates: start: 20160420
  20. NYSTATIN. [Concomitant]
     Active Substance: NYSTATIN
     Dosage: UNK UNK, 3X/DAY (APPLY 3X DAILY FOR 14 DAYS TO COMPLETE AFFECTED AREAS)
     Dates: start: 20160623
  21. DIOVAN [Concomitant]
     Active Substance: VALSARTAN
     Dosage: 160 MG, 2X/DAY
     Route: 048
     Dates: start: 20150804
  22. GLUCOPHAGE [Concomitant]
     Active Substance: METFORMIN HYDROCHLORIDE
     Dosage: 1000 MG, DAILY (2 TABS (1000MG) BY MOUTH EVERY MORNING)
     Route: 048
     Dates: start: 20151020
  23. LASIX [Concomitant]
     Active Substance: FUROSEMIDE
     Dosage: 20 MG, DAILY
     Route: 048
     Dates: start: 20160204
  24. FLOMAX [Concomitant]
     Active Substance: TAMSULOSIN HYDROCHLORIDE
     Dosage: 0.4 MG, DAILY
     Route: 048
     Dates: start: 20160412
  25. FLUCONAZOLE. [Concomitant]
     Active Substance: FLUCONAZOLE
     Dosage: 100 MG, DAILY (1 TAB BY MOUTH 1X DAILY (ILLEGIBLE) 10 DAYS)
     Route: 048
     Dates: start: 20160622
  26. GLUCOPHAGE [Concomitant]
     Active Substance: METFORMIN HYDROCHLORIDE
     Dosage: 500 MG, DAILY (1 TAB EVERY NIGHT AT BEDTIME)
     Dates: start: 20151020
  27. GINKGO BILOBA [Concomitant]
     Active Substance: GINKGO
     Dosage: 150 MG, AS NEEDED (30 MG TABLET TAKE 5 TABS (150 MG) BY MOUTH)
     Route: 048
     Dates: start: 20140830

REACTIONS (2)
  - Hypoacusis [Not Recovered/Not Resolved]
  - Sedation [Unknown]
